FAERS Safety Report 6928340-2 (Version None)
Quarter: 2010Q3

REPORT INFORMATION
  Report Type: 
  Country: None (occurrence: None)
  Receive Date: 20100817
  Receipt Date: 20100803
  Transmission Date: 20110219
  Serious: Yes (Other)
  Sender: FDA-Public Use
  Company Number: RU-BAYER-201035272GPV

PATIENT
  Sex: Female

DRUGS (1)
  1. NIMOTOP [Suspect]
     Indication: SUBARACHNOID HAEMORRHAGE
     Dosage: 3-4 TIMES A DAY
     Route: 041
     Dates: end: 20100728

REACTIONS (1)
  - QUADRIPLEGIA [None]
